FAERS Safety Report 17201623 (Version 2)
Quarter: 2020Q1

REPORT INFORMATION
  Report Type: Report from Study
  Country: None (occurrence: CA)
  Receive Date: 20191226
  Receipt Date: 20200106
  Transmission Date: 20200409
  Serious: No
  Sender: FDA-Public Use
  Company Number: CA-ABBVIE-19K-028-3206968-00

PATIENT
  Age: 58 Year
  Sex: Female
  Weight: 61.29 kg

DRUGS (1)
  1. HUMIRA [Suspect]
     Active Substance: ADALIMUMAB
     Indication: PRODUCT USED FOR UNKNOWN INDICATION
     Route: 058
     Dates: start: 20180403

REACTIONS (16)
  - Chills [Unknown]
  - Fatigue [Unknown]
  - Blood iron decreased [Unknown]
  - Rash macular [Recovered/Resolved]
  - Rectal haemorrhage [Unknown]
  - Rash [Recovering/Resolving]
  - Hypersomnia [Unknown]
  - Influenza [Unknown]
  - Blood folate decreased [Unknown]
  - Pruritus [Recovered/Resolved]
  - Nail disorder [Unknown]
  - Pruritus [Recovering/Resolving]
  - Subcorneal pustular dermatosis [Unknown]
  - Nail growth abnormal [Unknown]
  - Hepatic enzyme increased [Unknown]
  - Rash [Unknown]

NARRATIVE: CASE EVENT DATE: 201910
